FAERS Safety Report 9494207 (Version 1)
Quarter: 2013Q3

REPORT INFORMATION
  Report Type: Spontaneous
  Country: US (occurrence: US)
  Receive Date: 20130903
  Receipt Date: 20130903
  Transmission Date: 20140515
  Serious: Yes (Other)
  Sender: FDA-Public Use
  Company Number: US-ASTRAZENECA-2013SE65809

PATIENT
  Age: 68 Year
  Sex: Female
  Weight: 100.7 kg

DRUGS (8)
  1. NEXIUM [Suspect]
     Indication: GASTROOESOPHAGEAL REFLUX DISEASE
     Route: 048
     Dates: start: 2011, end: 2013
  2. NEXIUM [Suspect]
     Indication: GASTROOESOPHAGEAL REFLUX DISEASE
     Route: 048
     Dates: start: 2013, end: 20130819
  3. METOPROLOL [Suspect]
     Indication: HYPERTENSION
     Route: 048
  4. LEVOTHYROXINE [Concomitant]
     Indication: HYPOTHYROIDISM
     Route: 048
     Dates: start: 2008
  5. LEXAPRO [Concomitant]
     Indication: DEPRESSION
     Route: 048
     Dates: start: 2012
  6. RISPERIDONE [Concomitant]
     Indication: HALLUCINATION
     Route: 048
     Dates: start: 2012
  7. LASIX [Concomitant]
     Indication: RENAL FAILURE
     Route: 048
     Dates: start: 2012
  8. LASIX [Concomitant]
     Indication: FLUID RETENTION
     Route: 048
     Dates: start: 2012

REACTIONS (7)
  - Renal failure [Recovered/Resolved]
  - Fluid retention [Not Recovered/Not Resolved]
  - Gastrooesophageal reflux disease [Unknown]
  - Vomiting [Not Recovered/Not Resolved]
  - Abdominal pain upper [Not Recovered/Not Resolved]
  - Drug ineffective [Unknown]
  - Drug dose omission [Not Recovered/Not Resolved]
